FAERS Safety Report 8042670-5 (Version None)
Quarter: 2012Q1

REPORT INFORMATION
  Report Type: 
  Country: None (occurrence: None)
  Receive Date: 20120112
  Receipt Date: 20120106
  Transmission Date: 20120608
  Serious: Yes (Hospitalization, Other)
  Sender: FDA-Public Use
  Company Number: US-MERCK-1107USA01259

PATIENT
  Age: 79 Year
  Sex: Female

DRUGS (11)
  1. LISINOPRIL [Concomitant]
     Indication: HYPERTENSION
     Route: 048
     Dates: start: 20000101
  2. FOSAMAX [Suspect]
     Route: 048
     Dates: start: 19950101, end: 20100801
  3. VITAMINS (UNSPECIFIED) [Concomitant]
     Route: 065
     Dates: start: 19800101
  4. CALCIUM (UNSPECIFIED) [Concomitant]
     Route: 065
     Dates: start: 19800101
  5. FOSAMAX [Suspect]
     Indication: OSTEOPOROSIS
     Route: 048
     Dates: start: 19950101, end: 20100801
  6. OMEPRAZOLE [Concomitant]
     Route: 065
     Dates: start: 20101021
  7. DYAZIDE [Concomitant]
     Indication: HYPERTENSION
     Route: 065
     Dates: start: 20000101
  8. OMEGA-3 MARINE TRIGLYCERIDES [Concomitant]
     Route: 065
     Dates: start: 19800101
  9. CHOLECALCIFEROL [Concomitant]
     Route: 065
     Dates: start: 19800101
  10. BONIVA [Concomitant]
     Route: 065
     Dates: start: 20101001
  11. PRAVASTATIN SODIUM [Concomitant]
     Indication: BLOOD CHOLESTEROL
     Route: 065
     Dates: start: 20080101

REACTIONS (6)
  - INTERVERTEBRAL DISC PROTRUSION [None]
  - FACET JOINT SYNDROME [None]
  - FEMUR FRACTURE [None]
  - SPINAL COLUMN STENOSIS [None]
  - CATARACT [None]
  - UTERINE DISORDER [None]
